FAERS Safety Report 18860429 (Version 2)
Quarter: 2021Q3

REPORT INFORMATION
  Report Type: Spontaneous
  Country: US (occurrence: US)
  Receive Date: 20210208
  Receipt Date: 20210716
  Transmission Date: 20211014
  Serious: No
  Sender: FDA-Public Use
  Company Number: US-GW PHARMA-202102USGW00401

PATIENT

DRUGS (1)
  1. EPIDIOLEX [Suspect]
     Active Substance: CANNABIDIOL
     Indication: IDIOPATHIC GENERALISED EPILEPSY
     Dosage: 100 MILLIGRAM, BID
     Route: 048
     Dates: start: 20200326

REACTIONS (2)
  - Product use in unapproved indication [Unknown]
  - Abdominal pain upper [Not Recovered/Not Resolved]
